FAERS Safety Report 4356721-2 (Version None)
Quarter: 2004Q2

REPORT INFORMATION
  Report Type: 
  Country: None (occurrence: None)
  Receive Date: 20040507
  Receipt Date: 20040427
  Transmission Date: 20050107
  Serious: Yes (Hospitalization)
  Sender: FDA-Public Use
  Company Number: HQWYE630528APR04

PATIENT
  Age: 61 Year
  Sex: Female

DRUGS (13)
  1. RAPAMUNE [Suspect]
     Indication: PROPHYLAXIS AGAINST TRANSPLANT REJECTION
     Dosage: 3 MG 1X PER 1 DAY, ORAL
     Route: 048
     Dates: start: 20040101
  2. PROGRAF [Concomitant]
  3. PROGRAF [Concomitant]
  4. PREDNISONE [Concomitant]
  5. PREVACID [Concomitant]
  6. SYNTHROID [Concomitant]
  7. NIASPAN [Concomitant]
  8. COZAAR [Concomitant]
  9. IMDUR [Concomitant]
  10. LASIX [Concomitant]
  11. ACETYLSALICYLIC ACID SRT [Concomitant]
  12. OS-CAL + D (CALCIUM CARBONATE/COLECALCIFEROL) [Concomitant]
  13. MULTIVITAMINS, PLAIN (MULTIVITAMINS, PLAIN) [Concomitant]

REACTIONS (4)
  - BILIRUBIN CONJUGATED INCREASED [None]
  - BLOOD BILIRUBIN INCREASED [None]
  - PCO2 DECREASED [None]
  - RENAL FAILURE [None]
